FAERS Safety Report 4502916-4 (Version None)
Quarter: 2004Q4

REPORT INFORMATION
  Report Type: 
  Country: None (occurrence: None)
  Receive Date: 20041112
  Receipt Date: 20041103
  Transmission Date: 20050328
  Serious: Yes (Death)
  Sender: FDA-Public Use
  Company Number: 2004UW16205

PATIENT
  Age: 83 Year
  Sex: Male
  Weight: 72.5755 kg

DRUGS (5)
  1. SEROQUEL [Suspect]
     Dosage: 200 MG PO
     Route: 048
  2. SEROQUEL [Suspect]
     Dosage: 25 MG PO
     Route: 048
  3. REMERON [Concomitant]
  4. ATIVAN [Concomitant]
  5. AMBIEN [Concomitant]

REACTIONS (1)
  - PARALYSIS [None]
